FAERS Safety Report 12948149 (Version 2)
Quarter: 2017Q4

REPORT INFORMATION
  Report Type: Report from Study
  Country: BR (occurrence: BR)
  Receive Date: 20161116
  Receipt Date: 20171106
  Transmission Date: 20180320
  Serious: Yes (Life-Threatening, Hospitalization, Other)
  Sender: FDA-Public Use
  Company Number: BR-ELI_LILLY_AND_COMPANY-BR201511008468

PATIENT
  Age: 78 Year
  Sex: Female

DRUGS (3)
  1. TERIPARATIDE [Suspect]
     Active Substance: TERIPARATIDE
     Dosage: UNK, QD
     Route: 058
  2. CALCIUM [Concomitant]
     Active Substance: CALCIUM
     Indication: OSTEOPOROSIS
     Dosage: UNK, UNKNOWN
     Route: 065
  3. TERIPARATIDE [Suspect]
     Active Substance: TERIPARATIDE
     Indication: PRODUCT USED FOR UNKNOWN INDICATION
     Dosage: UNK, QD
     Route: 058
     Dates: start: 20151120

REACTIONS (25)
  - Bone density decreased [Unknown]
  - Spinal pain [Not Recovered/Not Resolved]
  - Chondropathy [Not Recovered/Not Resolved]
  - Pain [Unknown]
  - Fracture [Unknown]
  - Lumbar vertebral fracture [Not Recovered/Not Resolved]
  - Amnesia [Unknown]
  - Vertebral lesion [Unknown]
  - Hypokalaemia [Unknown]
  - Confusional state [Unknown]
  - Syncope [Unknown]
  - Osteoarthritis [Not Recovered/Not Resolved]
  - Drug ineffective [Unknown]
  - Intentional product misuse [Unknown]
  - Asthenia [Unknown]
  - Headache [Unknown]
  - Back pain [Unknown]
  - Cerebral disorder [Unknown]
  - Fall [Unknown]
  - Coma [Unknown]
  - Bone disorder [Unknown]
  - Pain in extremity [Unknown]
  - Arthralgia [Unknown]
  - Drug dose omission [Unknown]
  - Nausea [Unknown]

NARRATIVE: CASE EVENT DATE: 20151120
